FAERS Safety Report 23100209 (Version 2)
Quarter: 2023Q4

REPORT INFORMATION
  Report Type: Spontaneous
  Country: JP (occurrence: None)
  Receive Date: 20231024
  Receipt Date: 20231027
  Transmission Date: 20240110
  Serious: Yes (Death, Hospitalization, Other)
  Sender: FDA-Public Use
  Company Number: 2023A240555

PATIENT
  Age: 76 Year
  Sex: Male

DRUGS (6)
  1. EVUSHELD [Suspect]
     Active Substance: CILGAVIMAB\TIXAGEVIMAB
     Indication: COVID-19 prophylaxis
     Dosage: DOSE UNKNOWN
     Route: 030
     Dates: start: 20221107, end: 20221107
  2. EVUSHELD [Suspect]
     Active Substance: CILGAVIMAB\TIXAGEVIMAB
     Indication: COVID-19 prophylaxis
     Dosage: DOSE UNKNOWN
     Route: 030
     Dates: start: 20230510, end: 20230510
  3. VONOPRAZAN FUMARATE [Concomitant]
     Active Substance: VONOPRAZAN FUMARATE
     Dosage: DOSE UNKNOWN
  4. AMLODIPINE [Concomitant]
     Active Substance: AMLODIPINE BESYLATE
     Dosage: DOSE UNKNOWN
  5. FLUCONAZOLE [Concomitant]
     Active Substance: FLUCONAZOLE
     Dosage: DOSE UNKNOWN
  6. SULFAMETHOXAZOLE\TRIMETHOPRIM [Concomitant]
     Active Substance: SULFAMETHOXAZOLE\TRIMETHOPRIM
     Dosage: DOSE UNKNOWN

REACTIONS (3)
  - Pulmonary embolism [Unknown]
  - COVID-19 pneumonia [Fatal]
  - Metastases to nasal sinuses [Unknown]

NARRATIVE: CASE EVENT DATE: 20230101
